FAERS Safety Report 21286730 (Version 1)
Quarter: 2022Q3

REPORT INFORMATION
  Report Type: Other
  Country: None (occurrence: US)
  Receive Date: 20220902
  Receipt Date: 20220902
  Transmission Date: 20221027
  Serious: Yes (Other)
  Sender: FDA-Public Use
  Company Number: US-Vi-Jon Inc.-2132511

PATIENT
  Sex: Female

DRUGS (1)
  1. MAGNESIUM CITRATE LEMON [Suspect]
     Active Substance: MAGNESIUM CITRATE
     Indication: Constipation
     Route: 048
     Dates: start: 20220710, end: 20220711

REACTIONS (4)
  - Diarrhoea [Unknown]
  - Haematochezia [None]
  - Weight decreased [None]
  - Infection [None]

NARRATIVE: CASE EVENT DATE: 20220710
